FAERS Safety Report 6221850-5 (Version None)
Quarter: 2009Q2

REPORT INFORMATION
  Report Type: 
  Country: None (occurrence: None)
  Receive Date: 20090609
  Receipt Date: 20090601
  Transmission Date: 20091009
  Serious: Yes (Other)
  Sender: FDA-Public Use
  Company Number: CHPA2009US12668

PATIENT
  Age: 52 Year
  Sex: Male
  Weight: 136.1 kg

DRUGS (1)
  1. GAS-X EXTRA STR CHEWABLE TABLETS UNKNOWN (NCH) (SIMETHICONE) CHEWABLE [Suspect]
     Indication: FLATULENCE
     Dosage: 125 MG, ONCE/SINGLE, ORAL
     Route: 048
     Dates: start: 20090524, end: 20090524

REACTIONS (2)
  - FAECES DISCOLOURED [None]
  - GASTRIC HAEMORRHAGE [None]
